FAERS Safety Report 14703599 (Version 1)
Quarter: 2018Q2

REPORT INFORMATION
  Report Type: Spontaneous
  Country: ES (occurrence: ES)
  Receive Date: 20180402
  Receipt Date: 20180402
  Transmission Date: 20180711
  Serious: Yes (Hospitalization, Other)
  Sender: FDA-Public Use
  Company Number: ES-AUROBINDO-AUR-APL-2018-014052

PATIENT
  Age: 67 Year
  Sex: Female

DRUGS (3)
  1. QUETIAPINE. [Suspect]
     Active Substance: QUETIAPINE
     Indication: PRODUCT USED FOR UNKNOWN INDICATION
     Dosage: 100 MILLIGRAM, ONCE A DAY
     Route: 048
  2. LITHIUM. [Suspect]
     Active Substance: LITHIUM
     Indication: PRODUCT USED FOR UNKNOWN INDICATION
     Dosage: 400 MILLIGRAM
     Route: 065
  3. RISPERIDONE. [Suspect]
     Active Substance: RISPERIDONE
     Indication: HALLUCINATIONS, MIXED
     Dosage: 6 MILLIGRAM, ONCE A DAY
     Route: 065

REACTIONS (9)
  - Leukocytosis [Unknown]
  - Parkinsonian gait [Unknown]
  - Pyrexia [Unknown]
  - Bradykinesia [Unknown]
  - Hypertension [Unknown]
  - Hyperhidrosis [Unknown]
  - Tachycardia [Unknown]
  - Neuroleptic malignant syndrome [Unknown]
  - Extrapyramidal disorder [Unknown]
